FAERS Safety Report 9934187 (Version 2)
Quarter: 2014Q3

REPORT INFORMATION
  Report Type: Spontaneous
  Country: US (occurrence: US)
  Receive Date: 20140228
  Receipt Date: 20140703
  Transmission Date: 20150326
  Serious: Yes (Other)
  Sender: FDA-Public Use
  Company Number: US-BAYER-2014-029701

PATIENT
  Age: 19 Year
  Sex: Female
  Weight: 115 kg

DRUGS (1)
  1. MIRENA [Suspect]
     Active Substance: LEVONORGESTREL
     Indication: CONTRACEPTION
     Dosage: 20 MCG/24HR, CONT
     Route: 015
     Dates: start: 20140204

REACTIONS (2)
  - Complication of device insertion [None]
  - Abdominal pain lower [None]

NARRATIVE: CASE EVENT DATE: 20140204
